FAERS Safety Report 21561814 (Version 1)
Quarter: 2022Q4

REPORT INFORMATION
  Report Type: Spontaneous
  Country: US (occurrence: None)
  Receive Date: 20221104
  Receipt Date: 20221104
  Transmission Date: 20230113
  Serious: Yes (Other)
  Sender: FDA-Public Use
  Company Number: None

PATIENT
  Age: 74 Year
  Sex: Male
  Weight: 75.96 kg

DRUGS (17)
  1. THALOMID [Suspect]
     Active Substance: THALIDOMIDE
     Indication: Plasma cell myeloma
     Dosage: FREQUENCY : DAILY;?
     Route: 048
     Dates: start: 20221001, end: 20221103
  2. DEXAMETHASONE [Concomitant]
     Active Substance: DEXAMETHASONE
  3. enalapril 5 mg-hydrochlorothiazide 12.5 mg tablet [Concomitant]
  4. FLUTICASONE [Concomitant]
     Active Substance: FLUTICASONE
  5. GENERLAC 10 GM/15 ML SOLUTION [Concomitant]
  6. lactulose 10 gram/15 mL (15 mL) oral solution [Concomitant]
  7. LEVOTHYROXINE 50 MCG TAB [Concomitant]
  8. lisinopril 2.5 mg tablet [Concomitant]
  9. pioglitazone 30 mg tablet [Concomitant]
  10. Prilosec 20 mg capsule,delayed release [Concomitant]
  11. Protonix 40 mg tablet,delayed release [Concomitant]
  12. SILODOSIN 8 MG CAP [Concomitant]
  13. valacyclovir 1 gram tablet [Concomitant]
  14. VASCEPA 1 GM CAP [Concomitant]
  15. vitamin E 400 unit capsule [Concomitant]
  16. BENEFIBER [Concomitant]
     Active Substance: STARCH, WHEAT
  17. MINERALS\VITAMINS [Concomitant]
     Active Substance: MINERALS\VITAMINS

REACTIONS (2)
  - Dizziness [None]
  - Neuropathy peripheral [None]

NARRATIVE: CASE EVENT DATE: 20221103
